FAERS Safety Report 6509584-0 (Version None)
Quarter: 2009Q4

REPORT INFORMATION
  Report Type: 
  Country: None (occurrence: None)
  Receive Date: 20091217
  Receipt Date: 20091204
  Transmission Date: 20100525
  Serious: Yes (Other)
  Sender: FDA-Public Use
  Company Number: 002734

PATIENT
  Sex: Female
  Weight: 80 kg

DRUGS (5)
  1. ISOKET (ISOKET) [Suspect]
     Dosage: 640 MG, 16 TABLETS OF 40MG ONCE ORAL
     Route: 048
  2. ACETYLSALICYLIC ACID (ASPRIN) [Suspect]
     Dosage: 2000 MG, 20 TABLETS OF 100MG ONCE ORAL
     Route: 048
  3. LORMETAZEPAM (LORMATAZEPAM) [Suspect]
     Dosage: 40 MG, 20 TABLETS OF 2MG ONCE ORAL
     Route: 048
  4. MOLSIDOMINE (MOLSIDOMIN) [Suspect]
     Dosage: 80 MG, 10 TABLETS OF 8MG ONCE ORAL
     Route: 048
  5. OXYCODON (OXYCODON) (NOT SPECIFIED) [Suspect]
     Dosage: 200 MG, 20 TABLETS OF 10 MG ONCE ORAL
     Route: 048

REACTIONS (3)
  - INCORRECT DOSE ADMINISTERED [None]
  - SOMNOLENCE [None]
  - SUICIDE ATTEMPT [None]
